FAERS Safety Report 18615335 (Version 2)
Quarter: 2022Q2

REPORT INFORMATION
  Report Type: Spontaneous
  Country: US (occurrence: US)
  Receive Date: 20201214
  Receipt Date: 20220428
  Transmission Date: 20220721
  Serious: Yes (Life-Threatening, Hospitalization, Other)
  Sender: FDA-Public Use
  Company Number: US-BAXTER-2020BAX024833

PATIENT
  Age: 44 Year
  Sex: Female

DRUGS (8)
  1. SODIUM CHLORIDE [Suspect]
     Active Substance: SODIUM CHLORIDE
     Indication: Irrigation therapy
     Dosage: 1000 ML (150 ML IN EACH EXPANDER)
     Route: 065
     Dates: start: 20130328
  2. SODIUM CHLORIDE [Suspect]
     Active Substance: SODIUM CHLORIDE
     Dosage: WITH BACITRACIN
     Route: 065
     Dates: start: 20130328
  3. LACTATED RINGERS SOLUTION [Suspect]
     Active Substance: CALCIUM CHLORIDE\POTASSIUM CHLORIDE\SODIUM CHLORIDE\SODIUM LACTATE
     Indication: Fluid replacement
     Route: 065
     Dates: start: 20130328
  4. STERILE WATER FOR INJECTION [Suspect]
     Active Substance: WATER
     Indication: Product used for unknown indication
     Route: 065
     Dates: start: 20130328
  5. BACITRACIN [Suspect]
     Active Substance: BACITRACIN
     Indication: Antibiotic therapy
     Dosage: 50000 UNITS
     Route: 065
     Dates: start: 20130328
  6. MARCAINE [Suspect]
     Active Substance: BUPIVACAINE HYDROCHLORIDE
     Indication: Breast reconstruction
     Route: 065
     Dates: start: 20130328
  7. VITAMIN A PALMITATE [Suspect]
     Active Substance: VITAMIN A PALMITATE
     Indication: Breast reconstruction
     Route: 065
     Dates: start: 20130328
  8. SURGICEL [Suspect]
     Active Substance: CELLULOSE, OXIDIZED\DEVICE
     Indication: Breast reconstruction
     Dosage: 4.5 ML?X1
     Route: 065
     Dates: start: 20130328

REACTIONS (19)
  - Device related infection [Unknown]
  - Post procedural infection [Unknown]
  - Serratia infection [Unknown]
  - Haemorrhage [Unknown]
  - Diabetes mellitus [Unknown]
  - Pancreatitis necrotising [Unknown]
  - Type 1 diabetes mellitus [Unknown]
  - Blood glucose decreased [Unknown]
  - Toxicity to various agents [Unknown]
  - Injury [Unknown]
  - Diabetic neuropathy [Unknown]
  - Nerve injury [Unknown]
  - Arthritis [Unknown]
  - Pancreatic injury [Unknown]
  - General physical health deterioration [Unknown]
  - Scar [Unknown]
  - Sleep deficit [Unknown]
  - Emotional distress [Unknown]
  - Somatic symptom disorder [Unknown]

NARRATIVE: CASE EVENT DATE: 20130328
